FAERS Safety Report 7470559-9 (Version None)
Quarter: 2011Q2

REPORT INFORMATION
  Report Type: 
  Country: None (occurrence: None)
  Receive Date: 20110510
  Receipt Date: 20110503
  Transmission Date: 20111010
  Serious: Yes (Other)
  Sender: FDA-Public Use
  Company Number: US-B.I. PHARMACEUTICALS,INC./RIDGEFIELD-2011-BP-12354BP

PATIENT
  Age: 82 Year
  Sex: Female

DRUGS (4)
  1. COUMADIN [Concomitant]
     Indication: CEREBROVASCULAR ACCIDENT
     Route: 048
  2. PRADAXA [Concomitant]
     Indication: ATRIAL FIBRILLATION
  3. PRADAXA [Concomitant]
     Indication: CEREBROVASCULAR ACCIDENT
     Route: 048
  4. AGGRENOX [Suspect]

REACTIONS (1)
  - CEREBROVASCULAR ACCIDENT [None]
